FAERS Safety Report 12759432 (Version 1)
Quarter: 2016Q3

REPORT INFORMATION
  Report Type: Spontaneous
  Country: US (occurrence: US)
  Receive Date: 20160919
  Receipt Date: 20160919
  Transmission Date: 20161109
  Serious: Yes (Other)
  Sender: FDA-Public Use
  Company Number: None

PATIENT
  Age: 73 Year
  Sex: Female
  Weight: 52.65 kg

DRUGS (6)
  1. B VITAMIN [Concomitant]
  2. PREDNISONE 5MG [Suspect]
     Active Substance: PREDNISONE
     Indication: SINUSITIS
  3. THYROXINE [Concomitant]
     Active Substance: LEVOTHYROXINE
  4. D VITAMIN [Concomitant]
  5. CALCIUM [Concomitant]
     Active Substance: CALCIUM
  6. ANTIBIOTIC [Concomitant]
     Active Substance: UNSPECIFIED INGREDIENT

REACTIONS (5)
  - Reaction to drug excipients [None]
  - Muscle twitching [None]
  - Mood altered [None]
  - Abdominal pain upper [None]
  - Myalgia [None]

NARRATIVE: CASE EVENT DATE: 20160919
